FAERS Safety Report 9806959 (Version 8)
Quarter: 2018Q1

REPORT INFORMATION
  Report Type: Report from Study
  Country: None (occurrence: NL)
  Receive Date: 20140109
  Receipt Date: 20180319
  Transmission Date: 20180509
  Serious: Yes (Hospitalization)
  Sender: FDA-Public Use
  Company Number: NL-ABBVIE-14P-114-1187618-00

PATIENT
  Age: 44 Year
  Sex: Female
  Weight: 75 kg

DRUGS (22)
  1. LUCRIN [Suspect]
     Active Substance: LEUPROLIDE ACETATE
     Route: 058
  2. ENALAPRIL [Concomitant]
     Active Substance: ENALAPRIL
     Indication: BLOOD PRESSURE DECREASED
     Route: 048
     Dates: start: 2003
  3. LUCRIN [Suspect]
     Active Substance: LEUPROLIDE ACETATE
     Route: 058
  4. LUCRIN [Suspect]
     Active Substance: LEUPROLIDE ACETATE
     Route: 058
  5. IBUPROFEN. [Concomitant]
     Active Substance: IBUPROFEN
     Indication: PAIN
     Route: 048
  6. CODEINE [Concomitant]
     Active Substance: CODEINE
     Indication: PRODUCT USED FOR UNKNOWN INDICATION
     Route: 048
  7. LUCRIN [Suspect]
     Active Substance: LEUPROLIDE ACETATE
     Route: 058
  8. CLINDAMYCIN. [Concomitant]
     Active Substance: CLINDAMYCIN
     Indication: PRODUCT USED FOR UNKNOWN INDICATION
     Route: 048
  9. MICONAZOLE CREAM [Concomitant]
     Indication: PRODUCT USED FOR UNKNOWN INDICATION
     Dosage: 20MG/G
     Route: 067
  10. HYPROMELLOSE [Concomitant]
     Active Substance: HYPROMELLOSES
     Indication: PRODUCT USED FOR UNKNOWN INDICATION
     Dosage: 3.2 MG/ML
     Route: 047
  11. CLEMASTINE [Concomitant]
     Active Substance: CLEMASTINE
     Indication: PRODUCT USED FOR UNKNOWN INDICATION
     Route: 048
  12. LUCRIN [Suspect]
     Active Substance: LEUPROLIDE ACETATE
     Route: 058
     Dates: start: 20130419
  13. LUCRIN [Suspect]
     Active Substance: LEUPROLIDE ACETATE
     Route: 058
  14. TIBOLONE [Concomitant]
     Active Substance: TIBOLONE
     Indication: PRODUCT USED FOR UNKNOWN INDICATION
     Route: 048
  15. LUCRIN [Suspect]
     Active Substance: LEUPROLIDE ACETATE
     Indication: ENDOMETRIOSIS
     Route: 058
     Dates: start: 20060630, end: 20060922
  16. PARACETAMOL [Concomitant]
     Active Substance: ACETAMINOPHEN
     Indication: PAIN
     Dosage: 3 TIMES PER DAY
     Route: 048
  17. MICONAZOLE. [Concomitant]
     Active Substance: MICONAZOLE
     Indication: PRODUCT USED FOR UNKNOWN INDICATION
     Route: 067
  18. LUCRIN [Suspect]
     Active Substance: LEUPROLIDE ACETATE
     Route: 058
  19. LUCRIN [Suspect]
     Active Substance: LEUPROLIDE ACETATE
     Route: 058
     Dates: start: 20070810, end: 20120127
  20. LUCRIN [Suspect]
     Active Substance: LEUPROLIDE ACETATE
     Route: 058
  21. LUCRIN [Suspect]
     Active Substance: LEUPROLIDE ACETATE
     Route: 058
  22. CARBOMER [Concomitant]
     Active Substance: CARBOMER
     Indication: PRODUCT USED FOR UNKNOWN INDICATION

REACTIONS (13)
  - Vesicoureteral reflux surgery [Unknown]
  - Nausea [Not Recovered/Not Resolved]
  - Hysterectomy [Unknown]
  - Vomiting [Not Recovered/Not Resolved]
  - Influenza like illness [Not Recovered/Not Resolved]
  - Haemorrhage [Not Recovered/Not Resolved]
  - Oophorectomy [Unknown]
  - Ovarian cyst [Not Recovered/Not Resolved]
  - Hot flush [Not Recovered/Not Resolved]
  - Enterostomy [Unknown]
  - Cartilage atrophy [Unknown]
  - Arthralgia [Unknown]
  - Headache [Not Recovered/Not Resolved]

NARRATIVE: CASE EVENT DATE: 2007
